FAERS Safety Report 8489749-1 (Version None)
Quarter: 2012Q3

REPORT INFORMATION
  Report Type: 
  Country: None (occurrence: None)
  Receive Date: 20120705
  Receipt Date: 20120628
  Transmission Date: 20120928
  Serious: Yes (Hospitalization)
  Sender: FDA-Public Use
  Company Number: CH-GLAXOSMITHKLINE-B0812359A

PATIENT
  Age: 47 Year
  Sex: Male

DRUGS (6)
  1. TRAMADOL HYDROCHLORIDE [Concomitant]
     Route: 048
     Dates: start: 20110101
  2. AUGMENTIN '125' [Suspect]
     Indication: SKULL FRACTURE
     Route: 048
     Dates: start: 20111224, end: 20111226
  3. ZOFRAN [Suspect]
     Indication: NAUSEA
     Route: 042
     Dates: start: 20120101
  4. NOVALGIN [Concomitant]
     Indication: SKULL FRACTURE
     Dosage: 2G PER DAY
     Route: 048
     Dates: start: 20111224
  5. HEPARIN [Suspect]
     Indication: PRODUCT USED FOR UNKNOWN INDICATION
     Route: 042
     Dates: start: 20111224
  6. FRAXIPARIN [Concomitant]
     Route: 058
     Dates: start: 20120101

REACTIONS (2)
  - MIXED LIVER INJURY [None]
  - JAUNDICE [None]
